FAERS Safety Report 7906816-9 (Version None)
Quarter: 2011Q4

REPORT INFORMATION
  Report Type: 
  Country: None (occurrence: None)
  Receive Date: 20111110
  Receipt Date: 20070611
  Transmission Date: 20120403
  Serious: Yes (Life-Threatening, Hospitalization, Other)
  Sender: FDA-Public Use
  Company Number: FR-PFIZER INC-2009236310

PATIENT
  Sex: Female

DRUGS (9)
  1. AVANDIA [Suspect]
     Dosage: UNK
     Route: 064
     Dates: end: 20070216
  2. TRANDATE [Concomitant]
     Route: 064
  3. NICARDIPINE HCL [Concomitant]
     Route: 064
  4. ALDOMET [Suspect]
     Dosage: UNK
     Route: 064
     Dates: start: 20070201
  5. HYDROXYZINE HCL [Suspect]
     Dosage: UNK
     Route: 064
     Dates: start: 20070201
  6. LERCANIDIPINE [Suspect]
     Dosage: UNK
     Route: 064
     Dates: end: 20070216
  7. MEPRONIZINE [Suspect]
     Dosage: UNK
     Route: 064
     Dates: start: 20050301
  8. EFFEXOR [Suspect]
     Route: 064
  9. INSULIN [Concomitant]
     Route: 064

REACTIONS (10)
  - FOETAL GROWTH RESTRICTION [None]
  - HYPOTONIA NEONATAL [None]
  - FOETAL ARRHYTHMIA [None]
  - PREMATURE BABY [None]
  - BRONCHOPULMONARY DYSPLASIA [None]
  - FOETAL EXPOSURE DURING PREGNANCY [None]
  - JAUNDICE NEONATAL [None]
  - PATENT DUCTUS ARTERIOSUS [None]
  - NEONATAL RESPIRATORY DISTRESS SYNDROME [None]
  - PULMONARY ARTERIAL HYPERTENSION [None]
